FAERS Safety Report 14011632 (Version 1)
Quarter: 2017Q3

REPORT INFORMATION
  Report Type: Spontaneous
  Country: TH (occurrence: TH)
  Receive Date: 20170926
  Receipt Date: 20170926
  Transmission Date: 20171128
  Serious: Yes (Death)
  Sender: FDA-Public Use
  Company Number: TH-VISTAPHARM, INC.-VER201709-000635

PATIENT
  Age: 15 Year
  Sex: Female

DRUGS (2)
  1. AZATHIOPRINE. [Suspect]
     Active Substance: AZATHIOPRINE
     Indication: AUTOIMMUNE HEPATITIS
  2. PREDNISOLONE. [Suspect]
     Active Substance: PREDNISOLONE
     Indication: AUTOIMMUNE HEPATITIS

REACTIONS (1)
  - Sepsis [Fatal]
